FAERS Safety Report 5378729-0 (Version None)
Quarter: 2007Q3

REPORT INFORMATION
  Report Type: 
  Country: None (occurrence: None)
  Receive Date: 20070705
  Receipt Date: 20070703
  Transmission Date: 20080115
  Serious: Yes (Death)
  Sender: FDA-Public Use
  Company Number: B0475144A

PATIENT

DRUGS (1)
  1. NELARABINE [Suspect]
     Indication: T-CELL LYMPHOMA
     Dosage: 1.5GM2 CYCLIC
     Route: 042

REACTIONS (1)
  - CEREBRAL HAEMORRHAGE [None]
